FAERS Safety Report 11846340 (Version 1)
Quarter: 2015Q4

REPORT INFORMATION
  Report Type: Report from Study
  Country: NL (occurrence: NL)
  Receive Date: 20151217
  Receipt Date: 20151217
  Transmission Date: 20160305
  Serious: Yes (Hospitalization)
  Sender: FDA-Public Use
  Company Number: NL-ABBVIE-15P-114-1517523-00

PATIENT
  Age: 68 Year
  Sex: Male

DRUGS (3)
  1. DUODOPA [Suspect]
     Active Substance: CARBIDOPA\LEVODOPA
     Indication: PARKINSON^S DISEASE
     Dosage: 20/5MG/ML: MD: 8.6 CD: 4.5 ED: 2.0 ND: NO NIGHT DOSE
     Route: 050
     Dates: start: 20130523
  2. SOTALOL. [Suspect]
     Active Substance: SOTALOL
     Indication: ARRHYTHMIA
     Route: 065
  3. SOTALOL. [Suspect]
     Active Substance: SOTALOL
     Dosage: HALVED
     Route: 065

REACTIONS (4)
  - Fall [Unknown]
  - Arrhythmia [Not Recovered/Not Resolved]
  - Syncope [Not Recovered/Not Resolved]
  - Fall [Not Recovered/Not Resolved]

NARRATIVE: CASE EVENT DATE: 201510
